FAERS Safety Report 4466090-5 (Version None)
Quarter: 2004Q4

REPORT INFORMATION
  Report Type: 
  Country: None (occurrence: None)
  Receive Date: 20041005
  Receipt Date: 20040920
  Transmission Date: 20050328
  Serious: Yes (Hospitalization)
  Sender: FDA-Public Use
  Company Number: 200413501FR

PATIENT
  Age: 64 Year
  Sex: Female
  Weight: 52 kg

DRUGS (6)
  1. CERUBIDINE [Suspect]
     Route: 042
     Dates: start: 19890804
  2. MYLERAN [Suspect]
     Route: 042
     Dates: start: 19900122, end: 19900125
  3. ARACYTINE [Suspect]
     Dates: start: 19890804, end: 19891025
  4. AMSIDINE [Suspect]
     Dates: start: 19891210
  5. ALKERAN [Suspect]
     Route: 048
     Dates: start: 19900126, end: 19900126
  6. ETOPOSIDE [Suspect]
     Dates: start: 19891210

REACTIONS (4)
  - CHRONIC MYELOMONOCYTIC LEUKAEMIA [None]
  - HAEMOGLOBIN DECREASED [None]
  - IMMUNOSUPPRESSION [None]
  - RETICULOCYTE COUNT INCREASED [None]
